FAERS Safety Report 5416462-7 (Version None)
Quarter: 2007Q3

REPORT INFORMATION
  Report Type: 
  Country: None (occurrence: None)
  Receive Date: 20070813
  Receipt Date: 20070813
  Transmission Date: 20080115
  Serious: Yes (Hospitalization)
  Sender: FDA-Public Use
  Company Number: None

PATIENT
  Sex: Male
  Weight: 73.6 kg

DRUGS (3)
  1. CISPLATIN [Suspect]
     Dosage: 80 MG
  2. ETOPOSIDE [Suspect]
     Dosage: 300 MG
  3. CAMPTOSAR [Suspect]
     Dosage: 190 MG

REACTIONS (11)
  - ASPERGILLOSIS [None]
  - ASTHENIA [None]
  - ATRIAL FIBRILLATION [None]
  - CHEST PAIN [None]
  - DYSPNOEA [None]
  - EMBOLIC CEREBRAL INFARCTION [None]
  - METASTASES TO BONE [None]
  - PULMONARY CAVITATION [None]
  - PYREXIA [None]
  - SPUTUM CULTURE [None]
  - SPUTUM CULTURE POSITIVE [None]
